FAERS Safety Report 6511666-4 (Version None)
Quarter: 2009Q4

REPORT INFORMATION
  Report Type: 
  Country: None (occurrence: None)
  Receive Date: 20091222
  Receipt Date: 20090507
  Transmission Date: 20100525
  Serious: No
  Sender: FDA-Public Use
  Company Number: US-ASTRAZENECA-2009UW11695

PATIENT
  Age: 58 Year
  Sex: Female

DRUGS (3)
  1. CRESTOR [Suspect]
     Indication: BLOOD CHOLESTEROL INCREASED
     Route: 048
  2. MOBIC [Concomitant]
  3. FLUID PILL [Concomitant]

REACTIONS (3)
  - CARDIAC FLUTTER [None]
  - MUSCLE SPASMS [None]
  - PALPITATIONS [None]
